FAERS Safety Report 15198183 (Version 2)
Quarter: 2018Q3

REPORT INFORMATION
  Report Type: Report from Study
  Country: US (occurrence: US)
  Receive Date: 20180725
  Receipt Date: 20180817
  Transmission Date: 20181010
  Serious: Yes (Hospitalization, Other)
  Sender: FDA-Public Use
  Company Number: PHHY2018US054500

PATIENT
  Age: 61 Year
  Sex: Female

DRUGS (17)
  1. DELTASONE [Concomitant]
     Active Substance: PREDNISONE
     Indication: BLOOD ALKALINE PHOSPHATASE INCREASED
     Dosage: 80 MG, BID
     Route: 048
     Dates: start: 20180716, end: 20180723
  2. LANTUS [Concomitant]
     Active Substance: INSULIN GLARGINE
     Indication: HYPERGLYCAEMIA
     Dosage: 5 U Q (30 DAYS) IN AM
     Route: 058
     Dates: start: 20180807
  3. FLUCAN [Concomitant]
     Indication: RECTAL LESION
     Dosage: 200 MG, QD
     Route: 048
     Dates: start: 20180807
  4. OXYCODONE [Concomitant]
     Active Substance: OXYCODONE
     Indication: PAIN
     Dosage: 5 MG, Q4H (PRN)
     Route: 048
     Dates: start: 20180413
  5. HUMALOG [Concomitant]
     Active Substance: INSULIN LISPRO
     Indication: HYPERGLYCAEMIA
     Dosage: 2?10 U BEFORE MEAL, TID
     Route: 058
     Dates: start: 20180807
  6. VALTREX [Concomitant]
     Active Substance: VALACYCLOVIR HYDROCHLORIDE
     Indication: HERPES SIMPLEX
     Dosage: 1000 MG, BID
     Route: 048
     Dates: start: 20180807, end: 20180810
  7. TRAMETINIB [Suspect]
     Active Substance: TRAMETINIB
     Indication: COLON CANCER METASTATIC
     Dosage: 2 MG, QD
     Route: 048
  8. DURVALUMAB. [Suspect]
     Active Substance: DURVALUMAB
     Indication: COLON CANCER METASTATIC
     Dosage: UNK MG, UNK
     Route: 042
  9. DELTASONE [Concomitant]
     Active Substance: PREDNISONE
     Indication: ALANINE AMINOTRANSFERASE INCREASED
     Dosage: 40 MG, BID
     Route: 048
     Dates: start: 20180706, end: 20180715
  10. SENNA [Concomitant]
     Active Substance: SENNA LEAF\SENNOSIDES\SENNOSIDES A AND B
     Indication: CONSTIPATION
     Dosage: 2 DF, QD
     Route: 048
     Dates: start: 20180807
  11. CHLORPHEN [Concomitant]
     Indication: COUGH
     Dosage: 1 DF, PRN
     Route: 048
     Dates: start: 20180103
  12. IMODIUM [Concomitant]
     Active Substance: LOPERAMIDE HYDROCHLORIDE
     Indication: DIARRHOEA
     Dosage: 2 MG, PRN
     Route: 048
     Dates: start: 20180413
  13. BACTRIM [Concomitant]
     Active Substance: SULFAMETHOXAZOLE\TRIMETHOPRIM
     Indication: RECTAL LESION
     Dosage: 400 MG, TID
     Route: 048
     Dates: start: 20180808
  14. VITAMIN C [Concomitant]
     Active Substance: ASCORBIC ACID
     Indication: SUPPLEMENTATION THERAPY
     Dosage: 1 DF, QD
     Route: 048
     Dates: start: 20180507
  15. RITALIN [Concomitant]
     Active Substance: METHYLPHENIDATE HYDROCHLORIDE
     Indication: FATIGUE
     Dosage: 2.5 MG, BID
     Route: 048
     Dates: start: 20170601
  16. CLINDAMYCIN. [Concomitant]
     Active Substance: CLINDAMYCIN
     Indication: DERMATITIS ACNEIFORM
     Dosage: 1 %, BID
     Route: 061
     Dates: start: 20180615
  17. VITAMIN D3 [Concomitant]
     Active Substance: CHOLECALCIFEROL
     Indication: SUPPLEMENTATION THERAPY
     Dosage: 1000 U, QD
     Route: 048
     Dates: start: 20180103

REACTIONS (16)
  - Chronic hepatitis [Unknown]
  - Product use in unapproved indication [Unknown]
  - Cholangitis [Unknown]
  - Autoimmune hepatitis [Unknown]
  - Cholestasis [Unknown]
  - Aspartate aminotransferase increased [Unknown]
  - Bile duct obstruction [Unknown]
  - Blood alkaline phosphatase increased [Unknown]
  - Alanine aminotransferase increased [Unknown]
  - Ascites [Unknown]
  - Portal hypertension [Unknown]
  - Blood bilirubin increased [Unknown]
  - Lipase increased [Unknown]
  - Hepatic steatosis [Unknown]
  - Platelet count decreased [Unknown]
  - Portal fibrosis [Unknown]

NARRATIVE: CASE EVENT DATE: 20180629
